FAERS Safety Report 14748209 (Version 1)
Quarter: 2018Q2

REPORT INFORMATION
  Report Type: Report from Study
  Country: RO (occurrence: RO)
  Receive Date: 20180411
  Receipt Date: 20180411
  Transmission Date: 20180711
  Serious: Yes (Death, Hospitalization, Other)
  Sender: FDA-Public Use
  Company Number: RO-GILEAD-2018-0331778

PATIENT
  Age: 50 Year
  Sex: Female

DRUGS (4)
  1. LEDIPASVIR/SOFOSBUVIR [Suspect]
     Active Substance: LEDIPASVIR\SOFOSBUVIR
     Indication: HEPATIC CIRRHOSIS
  2. LEDIPASVIR/SOFOSBUVIR [Suspect]
     Active Substance: LEDIPASVIR\SOFOSBUVIR
     Indication: HEPATITIS C
     Dosage: 1 DF, QD
     Route: 048
     Dates: start: 20180315, end: 20180320
  3. LEDIPASVIR/SOFOSBUVIR [Suspect]
     Active Substance: LEDIPASVIR\SOFOSBUVIR
     Indication: MODEL FOR END STAGE LIVER DISEASE SCORE
  4. LEDIPASVIR/SOFOSBUVIR [Suspect]
     Active Substance: LEDIPASVIR\SOFOSBUVIR
     Indication: CHILD-PUGH-TURCOTTE SCORE INCREASED

REACTIONS (3)
  - Cerebral haemorrhage [Fatal]
  - Aneurysm [Fatal]
  - Cardio-respiratory arrest [Fatal]

NARRATIVE: CASE EVENT DATE: 20180320
